FAERS Safety Report 8854548 (Version 1)
Quarter: 2012Q4

REPORT INFORMATION
  Report Type: 
  Country: BE (occurrence: BE)
  Receive Date: 20121023
  Receipt Date: 20121023
  Transmission Date: 20130627
  Serious: Yes (Hospitalization, Other)
  Sender: FDA-Public Use
  Company Number: BE-MERCK-1210BEL009275

PATIENT
  Age: 43 Year
  Sex: Female

DRUGS (4)
  1. SAPHRIS [Suspect]
     Indication: BIPOLAR DISORDER
     Dosage: 10 mg, bid
     Route: 048
     Dates: start: 20120928, end: 20121007
  2. ZYPREXA [Suspect]
     Indication: BIPOLAR DISORDER
     Dosage: 10 mg, bid
     Route: 060
     Dates: end: 20120928
  3. ZYPREXA [Suspect]
     Dosage: UNK
     Dates: start: 20121007
  4. ABILIFY [Suspect]
     Indication: BIPOLAR DISORDER
     Dosage: 15 mg, qd
     Route: 060
     Dates: end: 20121007

REACTIONS (3)
  - Psychiatric decompensation [Not Recovered/Not Resolved]
  - Hypoaesthesia [Recovered/Resolved]
  - Incorrect route of drug administration [Unknown]
